FAERS Safety Report 9858022 (Version 1)
Quarter: 2014Q1

REPORT INFORMATION
  Report Type: Spontaneous
  Country: US (occurrence: US)
  Receive Date: 20140131
  Receipt Date: 20140131
  Transmission Date: 20141002
  Serious: Yes (Other)
  Sender: FDA-Public Use
  Company Number: PHHY2014US010229

PATIENT
  Sex: Male

DRUGS (11)
  1. CICLOSPORIN [Suspect]
     Dosage: 14 MG/KG, UNK
  2. CICLOSPORIN [Suspect]
     Dosage: 6.4 MG/KG, UNK
  3. CICLOSPORIN [Suspect]
     Dosage: 325 MG, UNK
  4. PREDNISONE [Suspect]
     Dosage: 2 MG/KG, UNK
  5. PREDNISONE [Suspect]
     Dosage: 20 MG, PER DAY
  6. PREDNISONE [Suspect]
     Dosage: 10 MG, UNK
  7. NAFCILLIN [Suspect]
     Dosage: 500 MG, UNK
  8. TOBRAMYCIN [Suspect]
     Dosage: 60 MG, UNK
  9. ERYTHROMYCIN [Suspect]
     Dosage: 1 G, UNK
     Route: 042
  10. OXYTOCIN [Suspect]
  11. BUPIVACAINE [Suspect]

REACTIONS (2)
  - Low birth weight baby [Unknown]
  - Foetal exposure during pregnancy [Unknown]
